FAERS Safety Report 4900056-3 (Version None)
Quarter: 2006Q1

REPORT INFORMATION
  Report Type: 
  Country: None (occurrence: None)
  Receive Date: 20060203
  Receipt Date: 20060131
  Transmission Date: 20060701
  Serious: Yes (Other)
  Sender: FDA-Public Use
  Company Number: PHNU2006DE00724

PATIENT
  Sex: Female

DRUGS (1)
  1. RITALIN [Suspect]
     Dosage: 30 MG/DAY
     Route: 048
     Dates: start: 20040101

REACTIONS (5)
  - BIOPSY LIVER NORMAL [None]
  - CERULOPLASMIN DECREASED [None]
  - COPPER METABOLISM DISORDER [None]
  - HEPATIC ENZYME INCREASED [None]
  - HEPATO-LENTICULAR DEGENERATION [None]
